FAERS Safety Report 14193780 (Version 1)
Quarter: 2017Q4

REPORT INFORMATION
  Report Type: Report from Study
  Country: US (occurrence: BR)
  Receive Date: 20171115
  Receipt Date: 20171115
  Transmission Date: 20180321
  Serious: Yes (Other)
  Sender: FDA-Public Use
  Company Number: US-SUNOVION-2017SUN004920

PATIENT
  Sex: Female

DRUGS (1)
  1. INDACATEROL AND GLYCOPYRROLATE [Suspect]
     Active Substance: GLYCOPYRROLATE\INDACATEROL MALEATE
     Indication: ASTHMA
     Dosage: 1 DF, QD  (110/50)
     Route: 055

REACTIONS (5)
  - Cataract [Unknown]
  - Weight decreased [Unknown]
  - Product use in unapproved indication [Unknown]
  - Post procedural complication [Unknown]
  - Visual impairment [Unknown]
